FAERS Safety Report 8144631-4 (Version None)
Quarter: 2012Q1

REPORT INFORMATION
  Report Type: 
  Country: None (occurrence: None)
  Receive Date: 20120217
  Receipt Date: 20120215
  Transmission Date: 20120608
  Serious: Yes (Other)
  Sender: FDA-Public Use
  Company Number: US-JNJFOC-20120109664

PATIENT
  Sex: Female
  Weight: 72.58 kg

DRUGS (14)
  1. ADDERALL 5 [Suspect]
     Route: 065
  2. SIMVASTATIN [Concomitant]
     Indication: BLOOD CHOLESTEROL INCREASED
     Route: 065
  3. CALCIUM AND VITAMINS [Concomitant]
     Indication: PRODUCT USED FOR UNKNOWN INDICATION
     Route: 065
  4. RISPERDAL [Suspect]
     Indication: MENTAL DISORDER
     Route: 065
  5. ADDERALL 5 [Suspect]
     Indication: ATTENTION DEFICIT/HYPERACTIVITY DISORDER
     Route: 065
  6. NAPROXEN [Concomitant]
     Indication: BACK PAIN
     Dosage: AS NEEDED
     Route: 065
  7. PREMARIN [Concomitant]
     Indication: HYSTERECTOMY
     Route: 065
  8. MULTI-VITAMINS [Concomitant]
     Indication: PRODUCT USED FOR UNKNOWN INDICATION
     Route: 065
  9. RISPERDAL [Suspect]
     Indication: DEPRESSION
     Route: 065
  10. EFFEXOR [Suspect]
     Indication: PRODUCT USED FOR UNKNOWN INDICATION
  11. GEODON [Suspect]
     Indication: DEPRESSION
     Route: 065
     Dates: start: 20040101
  12. PRILOSEC [Concomitant]
     Indication: ABDOMINAL DISCOMFORT
     Dosage: AS NEEDED
     Route: 065
  13. GEODON [Suspect]
     Indication: MENTAL DISORDER
     Route: 065
     Dates: start: 20040101
  14. XANAX [Concomitant]
     Indication: ANXIETY DISORDER
     Route: 065

REACTIONS (7)
  - SCHIZOAFFECTIVE DISORDER [None]
  - MEDICATION ERROR [None]
  - FEELING ABNORMAL [None]
  - FATIGUE [None]
  - MALAISE [None]
  - WEIGHT INCREASED [None]
  - DRUG INEFFECTIVE [None]
